FAERS Safety Report 16200080 (Version 2)
Quarter: 2019Q4

REPORT INFORMATION
  Report Type: Report from Study
  Country: US (occurrence: US)
  Receive Date: 20190415
  Receipt Date: 20191023
  Transmission Date: 20200122
  Serious: No
  Sender: FDA-Public Use
  Company Number: US-SA-2019SA100278

PATIENT
  Age: 58 Year
  Sex: Female

DRUGS (1)
  1. TERIFLUNOMIDE. [Suspect]
     Active Substance: TERIFLUNOMIDE
     Indication: MULTIPLE SCLEROSIS
     Dosage: 14 MG, QD
     Route: 048
     Dates: start: 20190328

REACTIONS (6)
  - Fatigue [Unknown]
  - Memory impairment [Unknown]
  - Platelet count decreased [Not Recovered/Not Resolved]
  - Influenza like illness [Unknown]
  - Alopecia [Unknown]
  - Hot flush [Unknown]
